FAERS Safety Report 5770765-5 (Version None)
Quarter: 2008Q2

REPORT INFORMATION
  Report Type: 
  Country: None (occurrence: None)
  Receive Date: 20080613
  Receipt Date: 20080512
  Transmission Date: 20081010
  Serious: No
  Sender: FDA-Public Use
  Company Number: US-ABBOTT-08P-163-0451563-00

PATIENT
  Sex: Female
  Weight: 59.928 kg

DRUGS (4)
  1. HUMIRA [Suspect]
     Indication: CROHN'S DISEASE
     Dosage: LOADING DOSE
     Route: 058
     Dates: start: 20080509, end: 20080509
  2. HUMIRA [Suspect]
  3. BUDESONIDE [Concomitant]
     Indication: CROHN'S DISEASE
  4. AMOXAPINE [Concomitant]
     Indication: DRUG USE FOR UNKNOWN INDICATION

REACTIONS (1)
  - ACCIDENTAL EXPOSURE [None]
